FAERS Safety Report 8270926-X (Version None)
Quarter: 2012Q2

REPORT INFORMATION
  Report Type: 
  Country: None (occurrence: None)
  Receive Date: 20120410
  Receipt Date: 20120403
  Transmission Date: 20120825
  Serious: Yes (Hospitalization)
  Sender: FDA-Public Use
  Company Number: US-PFIZER INC-2012085204

PATIENT
  Age: 46 Year
  Sex: Female
  Weight: 161 kg

DRUGS (4)
  1. REVATIO [Suspect]
     Dosage: UNK
  2. TREPROSTINIL SODIUM [Suspect]
     Indication: COR PULMONALE CHRONIC
  3. COUMADIN [Concomitant]
  4. TREPROSTINIL SODIUM [Suspect]
     Indication: PULMONARY ARTERIAL HYPERTENSION
     Dosage: 54 UG, 4X/DAY (9 BREATHS) 4 TIMES A DAY
     Route: 055
     Dates: start: 20110831

REACTIONS (3)
  - OEDEMA [None]
  - DIZZINESS [None]
  - DEHYDRATION [None]
